FAERS Safety Report 16306469 (Version 1)
Quarter: 2019Q2

REPORT INFORMATION
  Report Type: Spontaneous
  Country: PT (occurrence: PT)
  Receive Date: 20190513
  Receipt Date: 20190513
  Transmission Date: 20190711
  Serious: Yes (Death, Hospitalization)
  Sender: FDA-Public Use
  Company Number: PHHY2019PT107895

PATIENT
  Age: 84 Year
  Sex: Male

DRUGS (1)
  1. PREDNISONE. [Suspect]
     Active Substance: PREDNISONE
     Indication: ECZEMA NUMMULAR
     Dosage: 7.5 MG, QD
     Route: 065

REACTIONS (9)
  - Dyspnoea [Fatal]
  - Mycetoma mycotic [Fatal]
  - Fungal infection [Fatal]
  - Respiratory failure [Fatal]
  - Tracheobronchitis [Fatal]
  - Pyrexia [Fatal]
  - Pneumonia [Fatal]
  - Productive cough [Fatal]
  - Tachypnoea [Fatal]
